FAERS Safety Report 23633041 (Version 1)
Quarter: 2024Q1

REPORT INFORMATION
  Report Type: Spontaneous
  Country: US (occurrence: None)
  Receive Date: 20240314
  Receipt Date: 20240314
  Transmission Date: 20240410
  Serious: Yes (Hospitalization)
  Sender: FDA-Public Use
  Company Number: None

PATIENT
  Sex: Female

DRUGS (3)
  1. ACTEMRA ACTPEN [Suspect]
     Active Substance: TOCILIZUMAB
     Dosage: OTHER QUANTITY : 1 PEN;?FREQUENCY : WEEKLY;?
     Route: 058
     Dates: start: 20220408
  2. L-METHYLFOLA [Concomitant]
  3. OXYCONTIN [Concomitant]

REACTIONS (5)
  - Spinal disorder [None]
  - Mass [None]
  - Therapy interrupted [None]
  - Headache [None]
  - Condition aggravated [None]
